FAERS Safety Report 9910823 (Version 5)
Quarter: 2014Q3

REPORT INFORMATION
  Report Type: Report from Study
  Country: US (occurrence: US)
  Receive Date: 20140219
  Receipt Date: 20140807
  Transmission Date: 20150326
  Serious: Yes (Hospitalization)
  Sender: FDA-Public Use
  Company Number: US-SANOFI-AVENTIS-2013SA085982

PATIENT
  Age: 74 Year
  Sex: Female

DRUGS (1)
  1. AUBAGIO [Suspect]
     Active Substance: TERIFLUNOMIDE
     Indication: MULTIPLE SCLEROSIS
     Dosage: AT ONE TIME
     Route: 048
     Dates: start: 20130724

REACTIONS (9)
  - Osteoporosis [Unknown]
  - Nasopharyngitis [Unknown]
  - Infection [Recovered/Resolved]
  - Crying [Unknown]
  - Skin ulcer [Not Recovered/Not Resolved]
  - Lower limb fracture [Unknown]
  - Pain in extremity [Unknown]
  - Fall [Unknown]
  - Impaired healing [Not Recovered/Not Resolved]

NARRATIVE: CASE EVENT DATE: 201401
